FAERS Safety Report 7347447-1 (Version None)
Quarter: 2011Q1

REPORT INFORMATION
  Report Type: 
  Country: None (occurrence: None)
  Receive Date: 20110311
  Receipt Date: 20110224
  Transmission Date: 20110831
  Serious: Yes (Other)
  Sender: FDA-Public Use
  Company Number: ES-GENENTECH-314167

PATIENT
  Age: 47 Year
  Sex: Female

DRUGS (2)
  1. ANTIHISTAMINICS [Concomitant]
     Indication: PRODUCT USED FOR UNKNOWN INDICATION
  2. XOLAIR [Suspect]
     Indication: DERMATITIS ATOPIC
     Dosage: UNK
     Route: 058
     Dates: start: 20110202

REACTIONS (1)
  - BLOOD PRESSURE INCREASED [None]
